FAERS Safety Report 8061959-7 (Version None)
Quarter: 2012Q1

REPORT INFORMATION
  Report Type: 
  Country: None (occurrence: None)
  Receive Date: 20120123
  Receipt Date: 20120111
  Transmission Date: 20120608
  Serious: Yes (Hospitalization)
  Sender: FDA-Public Use
  Company Number: US-BAYER-2011-075709

PATIENT
  Age: 26 Year
  Sex: Female
  Weight: 88.889 kg

DRUGS (2)
  1. YAZ [Suspect]
     Indication: CONTRACEPTION
     Dosage: UNK
     Dates: start: 20090501, end: 20090801
  2. YAZ [Suspect]
     Indication: ACNE

REACTIONS (2)
  - GALLBLADDER INJURY [None]
  - CHOLECYSTITIS [None]
